FAERS Safety Report 7601547-7 (Version None)
Quarter: 2011Q3

REPORT INFORMATION
  Report Type: 
  Country: None (occurrence: None)
  Receive Date: 20110711
  Receipt Date: 20110630
  Transmission Date: 20111222
  Serious: Yes (Hospitalization, Other)
  Sender: FDA-Public Use
  Company Number: US-ELI_LILLY_AND_COMPANY-US201105007230

PATIENT
  Sex: Female

DRUGS (10)
  1. KLOR-CON [Concomitant]
  2. LASIX [Concomitant]
  3. IMDUR [Concomitant]
  4. DIOVAN [Concomitant]
  5. NORVASC [Concomitant]
  6. FORTEO [Suspect]
     Dosage: 20 UG, QD
     Route: 058
     Dates: start: 20100809
  7. NITROSTAT [Concomitant]
     Dosage: 0.4 MG, PRN
  8. NORCO [Concomitant]
  9. PLAVIX [Concomitant]
  10. BYSTOLIC [Concomitant]

REACTIONS (2)
  - MYOCARDIAL ISCHAEMIA [None]
  - CARDIAC FAILURE CONGESTIVE [None]
